FAERS Safety Report 5751804-4 (Version None)
Quarter: 2008Q2

REPORT INFORMATION
  Report Type: 
  Country: None (occurrence: None)
  Receive Date: 20080527
  Receipt Date: 20080516
  Transmission Date: 20081010
  Serious: Yes (Life-Threatening, Hospitalization)
  Sender: FDA-Public Use
  Company Number: DSA_31698_2008

PATIENT
  Sex: Female
  Weight: 71.6683 kg

DRUGS (13)
  1. LORAZEPAM [Suspect]
     Dosage: (20 MG 1X ORAL)
     Route: 048
     Dates: start: 20080215, end: 20080215
  2. LORAZEPAM [Suspect]
     Indication: ANXIETY
     Dosage: (0.5 MG BID)
     Dates: end: 20080201
  3. ZOLPIDEM TARTRATE [Suspect]
     Indication: INSOMNIA
     Dosage: (40 DF 1X ORAL)
     Route: 048
     Dates: start: 20080215, end: 20080215
  4. ZOLPIDEM TARTRATE [Suspect]
     Indication: INSOMNIA
     Dosage: (12.5 MG ORAL)
     Route: 048
     Dates: start: 20060608, end: 20080101
  5. UNKNOWN DRUG [Suspect]
     Indication: DRUG USE FOR UNKNOWN INDICATION
     Dosage: (30 DF 1X)
  6. REQUIP [Concomitant]
  7. VICODIN [Concomitant]
  8. PAXIL [Concomitant]
  9. DIFLUCAN [Concomitant]
  10. CLONAZEPAM [Concomitant]
  11. AVELOX /01453201/ [Concomitant]
  12. ZOLOFT [Concomitant]
  13. PERCOCET [Concomitant]

REACTIONS (10)
  - ABNORMAL BEHAVIOUR [None]
  - AMNESIA [None]
  - DEPRESSION [None]
  - DRUG INTERACTION [None]
  - HERPES ZOSTER [None]
  - MIDDLE INSOMNIA [None]
  - MULTIPLE DRUG OVERDOSE ACCIDENTAL [None]
  - POISONING [None]
  - RESPIRATORY ARREST [None]
  - URINARY TRACT INFECTION [None]
